FAERS Safety Report 15215789 (Version 1)
Quarter: 2018Q3

REPORT INFORMATION
  Report Type: Spontaneous
  Country: US (occurrence: US)
  Receive Date: 20180703
  Receipt Date: 20180703
  Transmission Date: 20181010
  Serious: Yes (Life-Threatening, Hospitalization)
  Sender: FDA-Public Use
  Company Number: None

PATIENT
  Age: 66 Year
  Sex: Male
  Weight: 98.5 kg

DRUGS (6)
  1. CARVEDILOL. [Concomitant]
     Active Substance: CARVEDILOL
  2. INSULIN DETEMIR [Concomitant]
     Active Substance: INSULIN DETEMIR
  3. TICAGRELOR. [Concomitant]
     Active Substance: TICAGRELOR
  4. LISINOPRIL. [Concomitant]
     Active Substance: LISINOPRIL
  5. ATORVASTATIN [Concomitant]
     Active Substance: ATORVASTATIN
  6. ALTEPLASE. [Suspect]
     Active Substance: ALTEPLASE
     Dosage: ?          OTHER FREQUENCY:9 MG BOLUS;?
     Route: 041
     Dates: start: 20180420, end: 20180420

REACTIONS (1)
  - Angioedema [None]

NARRATIVE: CASE EVENT DATE: 20180420
